FAERS Safety Report 25167704 (Version 1)
Quarter: 2025Q2

REPORT INFORMATION
  Report Type: Spontaneous
  Country: UA (occurrence: UA)
  Receive Date: 20250407
  Receipt Date: 20250407
  Transmission Date: 20250717
  Serious: Yes (Death)
  Sender: MYLAN
  Company Number: UA-MYLANLABS-2025M1028893

PATIENT
  Age: 60 Year
  Sex: Male

DRUGS (3)
  1. PRETOMANID [Suspect]
     Active Substance: PRETOMANID
     Indication: Tuberculosis
     Dosage: 200 MILLIGRAM, QD
     Dates: start: 20250219, end: 20250227
  2. LINEZOLID [Concomitant]
     Active Substance: LINEZOLID
     Dosage: 300 MILLIGRAM, QD (7/7 DAY(S))
     Dates: start: 20250219
  3. SIRTURO [Concomitant]
     Active Substance: BEDAQUILINE FUMARATE
     Dosage: 400 MILLIGRAM, QD (7/7 DAY(S))
     Dates: start: 20250219

REACTIONS (1)
  - Death [Fatal]

NARRATIVE: CASE EVENT DATE: 20250227
